FAERS Safety Report 8619451-4 (Version None)
Quarter: 2012Q3

REPORT INFORMATION
  Report Type: 
  Country: None (occurrence: None)
  Receive Date: 20120824
  Receipt Date: 20120813
  Transmission Date: 20120928
  Serious: Yes (Death, Hospitalization)
  Sender: FDA-Public Use
  Company Number: BR-BRISTOL-MYERS SQUIBB COMPANY-16862526

PATIENT
  Age: 64 Year
  Sex: Male

DRUGS (6)
  1. FORMOTEROL FUMARATE [Concomitant]
     Indication: PULMONARY INTERSTITIAL EMPHYSEMA SYNDROME
     Dosage: 1DF= 24/800MCG ONE INHALATION 2 PER 1 D
     Route: 048
     Dates: start: 20100801
  2. VITAMIN B COMPLEX CAP [Concomitant]
     Indication: HEPATITIS C
     Dosage: TABS
     Route: 048
     Dates: start: 20100801
  3. METFORMIN HCL [Suspect]
     Indication: DIABETES MELLITUS
     Dosage: TABS
     Route: 048
     Dates: start: 20100801, end: 20110829
  4. HYDROCHLOROTHIAZIDE [Concomitant]
     Dosage: TABS
     Route: 048
     Dates: start: 20100801
  5. ACETAMINOPHEN [Concomitant]
     Route: 048
     Dates: start: 20100801
  6. OMEPRAZOLE [Concomitant]
     Indication: GASTRIC ULCER
     Dosage: TABS
     Route: 048
     Dates: start: 20100801

REACTIONS (3)
  - HEADACHE [None]
  - DYSPNOEA [None]
  - GASTROINTESTINAL HAEMORRHAGE [None]
